FAERS Safety Report 24013839 (Version 1)
Quarter: 2024Q2

REPORT INFORMATION
  Report Type: Spontaneous
  Country: JP (occurrence: JP)
  Receive Date: 20240626
  Receipt Date: 20240626
  Transmission Date: 20240716
  Serious: Yes (Life-Threatening)
  Sender: FDA-Public Use
  Company Number: JP-CHUGAI-2024021012

PATIENT
  Age: 7 Decade
  Sex: Female

DRUGS (3)
  1. PERJETA [Suspect]
     Active Substance: PERTUZUMAB
     Indication: Breast cancer metastatic
     Dosage: UNK
     Route: 042
  2. HERCEPTIN [Suspect]
     Active Substance: TRASTUZUMAB
     Indication: Breast cancer metastatic
     Dosage: UNK
     Route: 042
  3. DOCETAXEL [Concomitant]
     Active Substance: DOCETAXEL\DOCETAXEL ANHYDROUS
     Dosage: UNK
     Route: 042

REACTIONS (1)
  - Stevens-Johnson syndrome [Recovered/Resolved]
